FAERS Safety Report 6273565-5 (Version None)
Quarter: 2009Q3

REPORT INFORMATION
  Report Type: 
  Country: None (occurrence: None)
  Receive Date: 20090715
  Receipt Date: 20090707
  Transmission Date: 20100115
  Serious: Yes (Other)
  Sender: FDA-Public Use
  Company Number: GXKR2009CH07852

PATIENT
  Age: 32 Year
  Sex: Female

DRUGS (5)
  1. CLARITHROMYCIN [Suspect]
     Indication: LYMPHADENITIS
     Dosage: 500 MG BID ORAL
     Route: 048
     Dates: start: 20090514, end: 20090528
  2. CIPROFLOXACIN [Suspect]
     Indication: LYMPHADENITIS
     Dosage: 500 MG BID ORAL
     Route: 048
     Dates: start: 20090514, end: 20090528
  3. RIFABUTIN [Suspect]
     Indication: LYMPHADENITIS
     Dosage: 150 MG/DAY ORAL
     Route: 048
     Dates: start: 20090514, end: 20090528
  4. AMOXICLIIN W/CLAVULANIC ACID (AMOXICILLIN, CLAVULANIC ACID) [Concomitant]
  5. CIPROFLOXACIN [Concomitant]

REACTIONS (4)
  - ARTHRALGIA [None]
  - DRUG INTERACTION [None]
  - NEUTROPENIA [None]
  - NO THERAPEUTIC RESPONSE [None]
